FAERS Safety Report 11427900 (Version 1)
Quarter: 2015Q3

REPORT INFORMATION
  Report Type: Report from Study
  Country: FR (occurrence: FR)
  Receive Date: 20150828
  Receipt Date: 20150828
  Transmission Date: 20151125
  Serious: Yes (Hospitalization)
  Sender: FDA-Public Use
  Company Number: FR-UNITED THERAPEUTICS LTD.-UTC-000444

PATIENT
  Age: 76 Year
  Sex: Female
  Weight: 71 kg

DRUGS (16)
  1. UT-15C SR [Suspect]
     Active Substance: TREPROSTINIL DIOLAMINE
     Indication: PULMONARY ARTERIAL HYPERTENSION
     Route: 048
     Dates: start: 20080206, end: 20081205
  2. FUROSEMIDE. [Concomitant]
     Active Substance: FUROSEMIDE
     Indication: PULMONARY ARTERIAL HYPERTENSION
     Dosage: DOSE INCREASED TO TREAT EVENT
     Dates: start: 200505
  3. MONOTILDIEM [Concomitant]
     Active Substance: DILTIAZEM
     Indication: PULMONARY ARTERIAL HYPERTENSION
     Dates: start: 200505
  4. GLYCEROL\PARAFFIN [Concomitant]
     Active Substance: GLYCERIN\PARAFFIN
     Indication: SCLERODERMA
     Dates: start: 20071031
  5. TRINITRINE [Concomitant]
     Active Substance: NITROGLYCERIN
     Route: 058
     Dates: start: 20081204, end: 20081206
  6. SPIRIVA [Concomitant]
     Active Substance: TIOTROPIUM BROMIDE MONOHYDRATE
     Dates: start: 20081203
  7. ZOLPIDEM [Concomitant]
     Active Substance: ZOLPIDEM\ZOLPIDEM TARTRATE
     Indication: INSOMNIA
     Dates: start: 20080130
  8. PARACETAMOL [Concomitant]
     Active Substance: ACETAMINOPHEN
     Indication: HEADACHE
     Dates: start: 20080208
  9. BOSENTAN [Concomitant]
     Active Substance: BOSENTAN
     Indication: PULMONARY ARTERIAL HYPERTENSION
     Dates: start: 20071003
  10. SULFARLEM [Concomitant]
     Active Substance: ANETHOLTRITHION
     Indication: BILIARY TRACT DISORDER
     Dates: start: 20071031
  11. AEQUASYL [Concomitant]
     Indication: SCLERODERMA
     Dates: start: 200610
  12. DIFFU-K [Concomitant]
     Active Substance: POTASSIUM CHLORIDE
     Indication: PULMONARY ARTERIAL HYPERTENSION
     Dates: start: 200610
  13. PREVISCAN [Concomitant]
     Active Substance: FLUINDIONE
     Indication: PULMONARY ARTERIAL HYPERTENSION
     Dates: start: 200505
  14. KETOPROPHENE [Concomitant]
     Indication: SCLERODERMA
     Dates: start: 20080208
  15. DISCOTRINE [Concomitant]
     Active Substance: NITROGLYCERIN
     Indication: PULMONARY ARTERIAL HYPERTENSION
     Dates: start: 2005
  16. POTASSIUM CHLORIDE. [Concomitant]
     Active Substance: POTASSIUM CHLORIDE
     Indication: HYPOKALAEMIA
     Dates: start: 20081202

REACTIONS (1)
  - Pulmonary oedema [Recovered/Resolved]

NARRATIVE: CASE EVENT DATE: 20081205
